FAERS Safety Report 18535284 (Version 1)
Quarter: 2020Q4

REPORT INFORMATION
  Report Type: Spontaneous
  Country: IN (occurrence: IN)
  Receive Date: 20201123
  Receipt Date: 20201123
  Transmission Date: 20210114
  Serious: Yes (Hospitalization)
  Sender: FDA-Public Use
  Company Number: IN-ABBVIE-20K-078-3654328-00

PATIENT
  Age: 80 Year
  Sex: Male

DRUGS (4)
  1. QUETIAPINE. [Concomitant]
     Active Substance: QUETIAPINE
  2. DIVALPROEX SODIUM DR [Suspect]
     Active Substance: DIVALPROEX SODIUM
     Indication: NEUROPSYCHIATRIC SYMPTOMS
     Route: 065
  3. QUETIAPINE. [Concomitant]
     Active Substance: QUETIAPINE
  4. QUETIAPINE. [Concomitant]
     Active Substance: QUETIAPINE
     Indication: NEUROPSYCHIATRIC SYMPTOMS

REACTIONS (2)
  - Encephalopathy [Recovered/Resolved]
  - Normal pressure hydrocephalus [Recovered/Resolved]
